FAERS Safety Report 14176637 (Version 2)
Quarter: 2019Q4

REPORT INFORMATION
  Report Type: Spontaneous
  Country: US (occurrence: US)
  Receive Date: 20171110
  Receipt Date: 20191016
  Transmission Date: 20200122
  Serious: Yes (Other)
  Sender: FDA-Public Use
  Company Number: US-TEVA-824448USA

PATIENT
  Age: 70 Year
  Sex: Male

DRUGS (9)
  1. DOXORUBICIN [Suspect]
     Active Substance: DOXORUBICIN
     Indication: THYMIC CANCER METASTATIC
     Route: 065
     Dates: start: 2007
  2. VINCRISTINE [Suspect]
     Active Substance: VINCRISTINE
     Indication: THYMIC CANCER METASTATIC
     Route: 065
     Dates: start: 2007
  3. PACLITAXEL. [Suspect]
     Active Substance: PACLITAXEL
     Indication: THYMIC CANCER METASTATIC
     Route: 065
     Dates: start: 2007
  4. IFOSFAMIDE. [Suspect]
     Active Substance: IFOSFAMIDE
     Indication: THYMIC CANCER METASTATIC
     Route: 065
     Dates: start: 2007
  5. CISPLATIN. [Suspect]
     Active Substance: CISPLATIN
     Indication: THYMIC CANCER METASTATIC
     Route: 065
     Dates: start: 2007
  6. ETOPOSIDE. [Suspect]
     Active Substance: ETOPOSIDE
     Indication: THYMIC CANCER METASTATIC
     Route: 065
     Dates: start: 2007
  7. CARBOPLATIN. [Suspect]
     Active Substance: CARBOPLATIN
     Indication: THYMIC CANCER METASTATIC
     Route: 065
     Dates: start: 2007
  8. CYCLOPHOSPHAMIDE. [Suspect]
     Active Substance: CYCLOPHOSPHAMIDE
     Indication: THYMIC CANCER METASTATIC
     Route: 065
     Dates: start: 2007
  9. SUNITINIB [Suspect]
     Active Substance: SUNITINIB
     Indication: THYMIC CANCER METASTATIC
     Dosage: 4 WEEKS ON AND 2 WEEKS OFF CYCLES
     Route: 065
     Dates: start: 201403

REACTIONS (1)
  - Blastic plasmacytoid dendritic cell neoplasia [Recovered/Resolved]

NARRATIVE: CASE EVENT DATE: 201505
